FAERS Safety Report 10070520 (Version 4)
Quarter: 2014Q3

REPORT INFORMATION
  Report Type: Spontaneous
  Country: US (occurrence: US)
  Receive Date: 20140410
  Receipt Date: 20140716
  Transmission Date: 20150326
  Serious: Yes (Life-Threatening, Hospitalization, Disabling, Other)
  Sender: FDA-Public Use
  Company Number: US-009507513-1404USA005442

PATIENT
  Sex: Male
  Weight: 129.25 kg

DRUGS (3)
  1. VYTORIN [Concomitant]
     Active Substance: EZETIMIBE\SIMVASTATIN
     Indication: TYPE V HYPERLIPIDAEMIA
     Dosage: 10 MG/20 MG, QD
     Route: 048
     Dates: start: 20061219
  2. JANUVIA [Suspect]
     Active Substance: SITAGLIPTIN PHOSPHATE
     Indication: DIABETES MELLITUS INADEQUATE CONTROL
  3. JANUVIA [Suspect]
     Active Substance: SITAGLIPTIN PHOSPHATE
     Indication: TYPE 2 DIABETES MELLITUS
     Dosage: 100 MG, QD
     Route: 048
     Dates: start: 20061219, end: 20071129

REACTIONS (15)
  - Adenocarcinoma pancreas [Unknown]
  - Diabetes mellitus [Not Recovered/Not Resolved]
  - Catheter placement [Unknown]
  - Vascular pseudoaneurysm [Unknown]
  - Diverticulum intestinal [Unknown]
  - Atelectasis [Unknown]
  - Metabolic syndrome [Unknown]
  - Gastrointestinal haemorrhage [Unknown]
  - Tendon sheath lesion excision [Unknown]
  - Pancreatitis acute [Recovered/Resolved]
  - Gout [Unknown]
  - Intussusception [Unknown]
  - Prostatomegaly [Unknown]
  - Hepatic cirrhosis [Unknown]
  - Aortic arteriosclerosis [Unknown]

NARRATIVE: CASE EVENT DATE: 20070313
